FAERS Safety Report 13107999 (Version 1)
Quarter: 2017Q1

REPORT INFORMATION
  Report Type: Spontaneous
  Country: US (occurrence: US)
  Receive Date: 20170112
  Receipt Date: 20170112
  Transmission Date: 20170428
  Serious: No
  Sender: FDA-Public Use
  Company Number: US-BAYER-2017-006106

PATIENT
  Sex: Female
  Weight: 52 kg

DRUGS (2)
  1. CLARITIN-D 24 HOUR [Suspect]
     Active Substance: LORATADINE\PSEUDOEPHEDRINE SULFATE
     Indication: RHINITIS ALLERGIC
     Dosage: UNK
     Route: 048
  2. MULTIVITAMIN [Concomitant]
     Active Substance: VITAMINS
     Dosage: UNK

REACTIONS (2)
  - Drug ineffective [Unknown]
  - Drug effect incomplete [Unknown]
